FAERS Safety Report 11025832 (Version 1)
Quarter: 2015Q2

REPORT INFORMATION
  Report Type: Spontaneous
  Country: US (occurrence: US)
  Receive Date: 20150414
  Receipt Date: 20150414
  Transmission Date: 20150821
  Serious: Yes (Hospitalization)
  Sender: FDA-Public Use
  Company Number: US-ASTRAZENECA-2015SE33220

PATIENT
  Age: 25143 Day
  Sex: Female
  Weight: 98.9 kg

DRUGS (1)
  1. BRILINTA [Suspect]
     Active Substance: TICAGRELOR
     Indication: STENT PLACEMENT
     Route: 048
     Dates: start: 20150327, end: 20150401

REACTIONS (5)
  - International normalised ratio decreased [Unknown]
  - Hyperhidrosis [Unknown]
  - Feeling hot [Unknown]
  - Dyspnoea [Unknown]
  - Renal impairment [Unknown]

NARRATIVE: CASE EVENT DATE: 20150329
